FAERS Safety Report 4996986-7 (Version None)
Quarter: 2006Q2

REPORT INFORMATION
  Report Type: 
  Country: None (occurrence: None)
  Receive Date: 20060509
  Receipt Date: 20060427
  Transmission Date: 20061013
  Serious: Yes (Hospitalization, Other)
  Sender: FDA-Public Use
  Company Number: FR-BRISTOL-MYERS SQUIBB COMPANY-13360185

PATIENT
  Age: 83 Year
  Sex: Male

DRUGS (2)
  1. COAPROVEL TABS [Suspect]
     Dosage: DURATION: SEVERAL YEARS
     Route: 048
  2. OMNISCAN [Suspect]
     Route: 042

REACTIONS (4)
  - BONE SARCOMA [None]
  - ECZEMA [None]
  - OEDEMA PERIPHERAL [None]
  - RASH ERYTHEMATOUS [None]
